FAERS Safety Report 7582284-4 (Version None)
Quarter: 2011Q2

REPORT INFORMATION
  Report Type: 
  Country: None (occurrence: None)
  Receive Date: 20110630
  Receipt Date: 20110616
  Transmission Date: 20111010
  Serious: Yes (Death, Life-Threatening, Hospitalization, Other)
  Sender: FDA-Public Use
  Company Number: US-BAYER-201024376NA

PATIENT
  Age: 39 Year
  Sex: Female
  Weight: 88.5 kg

DRUGS (5)
  1. CLINDAMYCIN [Concomitant]
  2. BACTROBAN NASAL [Concomitant]
  3. YASMIN [Suspect]
     Indication: PRODUCT USED FOR UNKNOWN INDICATION
     Route: 048
     Dates: start: 20080601, end: 20081118
  4. FLUTICASONE PROPIONATE [Concomitant]
  5. LORTAB [Concomitant]

REACTIONS (21)
  - CELLULITIS [None]
  - PULMONARY PNEUMATOCELE [None]
  - ARRHYTHMIA [None]
  - PAIN IN EXTREMITY [None]
  - RESPIRATORY FAILURE [None]
  - FEELING HOT [None]
  - DYSPNOEA [None]
  - PNEUMONIA [None]
  - TACHYCARDIA [None]
  - PULMONARY EMBOLISM [None]
  - CHEST PAIN [None]
  - ACUTE RESPIRATORY DISTRESS SYNDROME [None]
  - OEDEMA PERIPHERAL [None]
  - PHARYNGITIS STREPTOCOCCAL [None]
  - CLOSTRIDIAL INFECTION [None]
  - HAEMOPTYSIS [None]
  - CHILLS [None]
  - ABDOMINAL PAIN [None]
  - PHLEBITIS [None]
  - RENAL FAILURE ACUTE [None]
  - PYREXIA [None]
